FAERS Safety Report 13893865 (Version 2)
Quarter: 2017Q4

REPORT INFORMATION
  Report Type: Spontaneous
  Country: US (occurrence: US)
  Receive Date: 20170822
  Receipt Date: 20171025
  Transmission Date: 20180320
  Serious: Yes (Other)
  Sender: FDA-Public Use
  Company Number: US-TEVA-798401USA

PATIENT
  Age: 49 Year
  Sex: Female

DRUGS (3)
  1. IRON [Concomitant]
     Active Substance: IRON
     Indication: IRON DEFICIENCY ANAEMIA
     Route: 065
  2. MULTIVITAMIN [Concomitant]
     Active Substance: VITAMINS
     Route: 065
  3. TRANEXAMIC ACID. [Suspect]
     Active Substance: TRANEXAMIC ACID
     Indication: LEIOMYOMA
     Dosage: 650MG
     Route: 065

REACTIONS (5)
  - Thrombosis [Recovered/Resolved]
  - Angiopathy [Recovered/Resolved]
  - Oedema [Recovered/Resolved]
  - Necrosis [Recovered/Resolved]
  - Uterine haemorrhage [Recovered/Resolved]
